FAERS Safety Report 17980372 (Version 4)
Quarter: 2021Q1

REPORT INFORMATION
  Report Type: Spontaneous
  Country: DE (occurrence: DE)
  Receive Date: 20200703
  Receipt Date: 20210224
  Transmission Date: 20210419
  Serious: Yes (Life-Threatening, Hospitalization, Disabling, Other)
  Sender: FDA-Public Use
  Company Number: DE-AUROBINDO-AUR-APL-2020-031412

PATIENT
  Age: 78 Year
  Sex: Male
  Weight: 90 kg

DRUGS (38)
  1. DUPIXENT [Suspect]
     Active Substance: DUPILUMAB
     Dosage: 300 MILLIGRAM, EVERY 2 WEEKS
     Route: 058
     Dates: start: 20190910
  2. MOMECUTAN [Concomitant]
     Active Substance: MOMETASONE FUROATE
     Indication: DERMATITIS ATOPIC
     Dosage: 1 DOSAGE FORM, EVERY WEEK
     Route: 061
  3. MOMECUTAN [Concomitant]
     Active Substance: MOMETASONE FUROATE
     Dosage: 2 DOSAGE FORM, EVERY WEEK
     Route: 061
  4. TAMSULOSIN [Concomitant]
     Active Substance: TAMSULOSIN
     Indication: BENIGN PROSTATIC HYPERPLASIA
     Dosage: 0.4 MILLIGRAM, ONCE A DAY
     Route: 048
  5. DUPIXENT [Suspect]
     Active Substance: DUPILUMAB
     Dosage: UNK
     Route: 065
     Dates: start: 201912
  6. ALGECIA [Concomitant]
     Indication: NEUROLOGICAL SYMPTOM
  7. ATORBEM [Concomitant]
     Indication: HYPOLIPIDAEMIA
     Dosage: 20 MILLIGRAM, ONCE A DAY
     Route: 048
  8. DECORTIN?H [Concomitant]
     Active Substance: PREDNISOLONE
     Indication: PRODUCT USED FOR UNKNOWN INDICATION
     Dosage: UNK UNK, ONCE A DAY (1 ? 0 ? 0)
     Route: 065
  9. PREDNISOLONE. [Concomitant]
     Active Substance: PREDNISOLONE
     Dosage: 15 MILLIGRAM, ONCE A DAY
     Route: 065
     Dates: start: 2019
  10. ASPIRIN. [Concomitant]
     Active Substance: ASPIRIN
     Indication: PRODUCT USED FOR UNKNOWN INDICATION
     Dosage: 100 MILLIGRAM
     Route: 065
  11. IBUPROFEN. [Concomitant]
     Active Substance: IBUPROFEN
     Indication: ARTHRALGIA
     Dosage: UNK
     Route: 065
  12. MOMECUTAN [Concomitant]
     Active Substance: MOMETASONE FUROATE
     Dosage: EVERY OTHER DAY (QOD FOR 1 WEEK)
     Route: 065
  13. PREDNISOLONE. [Concomitant]
     Active Substance: PREDNISOLONE
     Dosage: 6 MILLIGRAM, ONCE A DAY
     Route: 048
  14. DUPIXENT [Suspect]
     Active Substance: DUPILUMAB
     Indication: NEURODERMATITIS
     Dosage: 600 MILLIGRAM, TOTAL
     Route: 058
     Dates: start: 20190506, end: 20190506
  15. DUPIXENT [Suspect]
     Active Substance: DUPILUMAB
     Dosage: 300 MILLIGRAM, EVERY 2 WEEKS
     Route: 058
     Dates: start: 20190603
  16. DUPIXENT [Suspect]
     Active Substance: DUPILUMAB
     Dosage: 300 MILLIGRAM, EVERY 2 WEEKS
     Route: 058
     Dates: start: 201907
  17. DUPIXENT [Suspect]
     Active Substance: DUPILUMAB
     Dosage: 200 MILLIGRAM, EVERY 2 WEEKS
     Route: 058
     Dates: start: 20191105
  18. PREDNISOLONE. [Concomitant]
     Active Substance: PREDNISOLONE
     Dosage: 6 MILLIGRAM
     Route: 065
  19. DUPIXENT [Suspect]
     Active Substance: DUPILUMAB
     Dosage: 200 MILLIGRAM, EVERY 2 WEEKS
     Route: 058
     Dates: start: 20191021
  20. ASPIRIN. [Concomitant]
     Active Substance: ASPIRIN
     Dosage: 1 DOSAGE FORM
     Route: 065
  21. GABAPENTIN. [Concomitant]
     Active Substance: GABAPENTIN
     Indication: PRODUCT USED FOR UNKNOWN INDICATION
     Dosage: UNK, ONCE A DAY (0 ? 0 ? 1)
     Route: 065
  22. METAMIZOLE [Concomitant]
     Active Substance: METAMIZOLE
     Indication: PAIN
     Dosage: 20 GTT DROPS, FOUR TIMES/DAY (20 ? 20 ? 20 ? 20)
     Route: 048
     Dates: start: 201912
  23. PANTOPRAZOLE [Concomitant]
     Active Substance: PANTOPRAZOLE
     Indication: GASTRIC DISORDER
     Dosage: 20 MILLIGRAM, ONCE A DAY
     Route: 048
  24. DUPIXENT [Suspect]
     Active Substance: DUPILUMAB
     Dosage: 300 MILLIGRAM, EVERY 2 WEEKS
     Route: 058
     Dates: start: 20190827
  25. DUPIXENT [Suspect]
     Active Substance: DUPILUMAB
     Dosage: 300 MILLIGRAM, EVERY 2 WEEKS
     Route: 058
     Dates: start: 20191203, end: 20200103
  26. ALGECIA [Concomitant]
     Indication: NEURALGIA
     Dosage: UNK UNK, ONCE A DAY
     Route: 048
     Dates: start: 201912
  27. ATORBEM [Concomitant]
     Indication: HYPOLIPIDAEMIA
     Dosage: 20 MILLIGRAM, ONCE A DAY  (0 ? 0 ? 1)
     Route: 048
  28. PREDNISOLONE. [Concomitant]
     Active Substance: PREDNISOLONE
     Dosage: 7.5 MILLIGRAM, ONCE A DAY
     Route: 065
     Dates: start: 2019
  29. TOCOPHERYL ACETATE [Concomitant]
     Active Substance: .ALPHA.-TOCOPHEROL ACETATE
     Indication: PRODUCT USED FOR UNKNOWN INDICATION
     Dosage: 1 DOSAGE FORM
     Route: 065
  30. RAMIPRIL. [Suspect]
     Active Substance: RAMIPRIL
     Indication: PRODUCT USED FOR UNKNOWN INDICATION
     Dosage: UNK
     Route: 065
  31. DUPIXENT [Suspect]
     Active Substance: DUPILUMAB
     Indication: DERMATITIS ATOPIC
     Dosage: UNK (EVERY 2 WEEK)
     Route: 065
     Dates: start: 201904
  32. PREDNISOLONE. [Concomitant]
     Active Substance: PREDNISOLONE
     Indication: DERMATITIS ATOPIC
     Dosage: 5 MILLIGRAM, ONCE A DAY
     Route: 065
  33. SILONDA [Concomitant]
     Indication: PRODUCT USED FOR UNKNOWN INDICATION
     Dosage: 1 DOSAGE FORM
     Route: 065
  34. DUPIXENT [Suspect]
     Active Substance: DUPILUMAB
     Dosage: 300 MILLIGRAM, EVERY 2 WEEKS
     Route: 058
     Dates: start: 20190520
  35. DUPIXENT [Suspect]
     Active Substance: DUPILUMAB
     Dosage: 200 MILLIGRAM, EVERY 2 WEEKS
     Route: 058
     Dates: start: 20191119
  36. FENISTIL [Concomitant]
     Active Substance: DIMETHINDENE
     Indication: PRODUCT USED FOR UNKNOWN INDICATION
     Dosage: AS NECESSARY (?  0 ? 0 ? 0 ? 2)
     Route: 065
  37. PREDNISOLONE. [Concomitant]
     Active Substance: PREDNISOLONE
     Dosage: 25 MILLIGRAM, ONCE A DAY
     Route: 065
  38. PREDNISOLONE. [Concomitant]
     Active Substance: PREDNISOLONE
     Dosage: 13.5 MILLIGRAM
     Route: 065

REACTIONS (32)
  - Autoimmune encephalopathy [Recovered/Resolved]
  - Rebound eczema [Unknown]
  - Neuralgia [Unknown]
  - Incorrect route of product administration [Unknown]
  - Brain oedema [Unknown]
  - Confusional state [Unknown]
  - Organic brain syndrome [Unknown]
  - Nausea [Unknown]
  - Pruritus [Unknown]
  - Drug ineffective [Unknown]
  - Myalgia [Recovered/Resolved]
  - Pyrexia [Recovered/Resolved]
  - Trigeminal nerve disorder [Unknown]
  - Memory impairment [Unknown]
  - Meningitis [Unknown]
  - Intervertebral disc operation [Unknown]
  - Hyporeflexia [Unknown]
  - Skin atrophy [Unknown]
  - Dermatitis atopic [Unknown]
  - Personality change [Recovered/Resolved]
  - Agitation [Unknown]
  - Hypoaesthesia [Unknown]
  - Hearing disability [Unknown]
  - Vasculitis [Unknown]
  - Vomiting [Unknown]
  - Hallucination, visual [Unknown]
  - Fatigue [Unknown]
  - Disorientation [Recovered/Resolved]
  - Hallucination [Recovered/Resolved]
  - Pain [Unknown]
  - Febrile infection [Unknown]
  - Aphasia [Unknown]

NARRATIVE: CASE EVENT DATE: 201906
